FAERS Safety Report 13953396 (Version 1)
Quarter: 2017Q3

REPORT INFORMATION
  Report Type: Spontaneous
  Country: US (occurrence: None)
  Receive Date: 20170908
  Receipt Date: 20170908
  Transmission Date: 20171128
  Serious: No
  Sender: FDA-Public Use
  Company Number: None

PATIENT
  Age: 61 Year
  Sex: Female

DRUGS (1)
  1. ALUNBRIG [Suspect]
     Active Substance: BRIGATINIB
     Dosage: 30 MG 6 TABS QD PO
     Route: 048

REACTIONS (3)
  - Muscle spasms [None]
  - Pain [None]
  - Therapy change [None]

NARRATIVE: CASE EVENT DATE: 20170801
